FAERS Safety Report 17358578 (Version 1)
Quarter: 2020Q1

REPORT INFORMATION
  Report Type: Spontaneous
  Country: US (occurrence: US)
  Receive Date: 20200201
  Receipt Date: 20200201
  Transmission Date: 20200409
  Serious: No
  Sender: FDA-Public Use
  Company Number: US-TEVA-2020-US-1175669

PATIENT
  Sex: Female

DRUGS (1)
  1. METOPROLOL SUCCINATE ACTAVIS [Suspect]
     Active Substance: METOPROLOL SUCCINATE
     Indication: ESSENTIAL TREMOR
     Route: 065

REACTIONS (2)
  - Product use in unapproved indication [Unknown]
  - Hypertension [Unknown]
